FAERS Safety Report 11622331 (Version 1)
Quarter: 2015Q4

REPORT INFORMATION
  Report Type: Spontaneous
  Country: US (occurrence: US)
  Receive Date: 20151013
  Receipt Date: 20151013
  Transmission Date: 20160304
  Serious: No
  Sender: FDA-Public Use
  Company Number: US-JNJFOC-20150310582

PATIENT
  Age: 8 Year
  Sex: Female
  Weight: 32.21 kg

DRUGS (3)
  1. CHILDRENS BENADRYL ALLERGY [Suspect]
     Active Substance: DIPHENHYDRAMINE HYDROCHLORIDE
     Indication: RHINORRHOEA
     Dosage: 1.5 TSP
     Route: 048
     Dates: start: 20150311, end: 20150311
  2. CHILDRENS TYLENOL [Suspect]
     Active Substance: ACETAMINOPHEN
     Indication: PYREXIA
     Dosage: 2 TSP
     Route: 048
     Dates: start: 20150307, end: 20150310
  3. CHILDRENS BENADRYL ALLERGY [Suspect]
     Active Substance: DIPHENHYDRAMINE HYDROCHLORIDE
     Indication: MULTIPLE ALLERGIES
     Dosage: 1.5 TSP
     Route: 048
     Dates: start: 20150311, end: 20150311

REACTIONS (1)
  - Headache [Unknown]
